FAERS Safety Report 22606389 (Version 1)
Quarter: 2023Q2

REPORT INFORMATION
  Report Type: Spontaneous
  Country: US (occurrence: US)
  Receive Date: 20230615
  Receipt Date: 20230615
  Transmission Date: 20230722
  Serious: No
  Sender: FDA-Public Use
  Company Number: US-MYLANLABS-2023M1052057

PATIENT
  Sex: Male
  Weight: 91.17 kg

DRUGS (1)
  1. LIDOCAINE PATCH [Suspect]
     Active Substance: LIDOCAINE
     Indication: Back pain
     Dosage: 5 PERCENT, TID
     Route: 003

REACTIONS (2)
  - Product adhesion issue [Unknown]
  - Off label use [Unknown]
